FAERS Safety Report 7709990-2 (Version None)
Quarter: 2011Q3

REPORT INFORMATION
  Report Type: 
  Country: None (occurrence: None)
  Receive Date: 20110825
  Receipt Date: 20110811
  Transmission Date: 20111222
  Serious: Yes (Hospitalization, Other)
  Sender: FDA-Public Use
  Company Number: PHHY2011DE68298

PATIENT
  Sex: Male
  Weight: 80 kg

DRUGS (2)
  1. HEPARIN [Concomitant]
     Indication: THROMBOSIS
     Dosage: 4000 IU, UNK
  2. RASILEZ AMLO [Suspect]
     Indication: HYPERTENSION
     Dosage: 1 DF, QD
     Route: 048
     Dates: start: 20110607, end: 20110626

REACTIONS (5)
  - OEDEMA PERIPHERAL [None]
  - DYSPNOEA [None]
  - VENOUS THROMBOSIS [None]
  - JOINT SWELLING [None]
  - CHILLS [None]
